FAERS Safety Report 8110950-0 (Version None)
Quarter: 2012Q1

REPORT INFORMATION
  Report Type: 
  Country: None (occurrence: None)
  Receive Date: 20120201
  Receipt Date: 20120201
  Transmission Date: 20120608
  Serious: Yes (Other)
  Sender: FDA-Public Use
  Company Number: None

PATIENT
  Sex: Male

DRUGS (2)
  1. HYDROCODONE BITARTRATE + ACETAMINOPHEN [Suspect]
     Dosage: 750 MG / 7.5 MG TID PO 047
     Route: 048
     Dates: start: 20110104, end: 20120123
  2. VICODIN [Suspect]

REACTIONS (3)
  - URTICARIA [None]
  - RASH [None]
  - DRUG HYPERSENSITIVITY [None]
